FAERS Safety Report 18322379 (Version 3)
Quarter: 2020Q4

REPORT INFORMATION
  Report Type: Spontaneous
  Country: GB (occurrence: GB)
  Receive Date: 20200929
  Receipt Date: 20201030
  Transmission Date: 20210113
  Serious: Yes (Other)
  Sender: FDA-Public Use
  Company Number: GB-ASTELLAS-2020US033057

PATIENT
  Age: 78 Year
  Sex: Male

DRUGS (6)
  1. PANITAZ [Concomitant]
     Indication: PRODUCT USED FOR UNKNOWN INDICATION
     Dosage: 5?10MG, ONCE WEEKLY
     Route: 065
     Dates: end: 20200823
  2. CANDESARTAN. [Concomitant]
     Active Substance: CANDESARTAN
     Indication: PRODUCT USED FOR UNKNOWN INDICATION
     Route: 065
  3. XTANDI [Suspect]
     Active Substance: ENZALUTAMIDE
     Indication: PROSTATE CANCER METASTATIC
     Route: 048
     Dates: start: 202007, end: 20200823
  4. BICALUTAMIDE. [Concomitant]
     Active Substance: BICALUTAMIDE
     Indication: ANDROGEN THERAPY
     Route: 065
     Dates: start: 201912, end: 202007
  5. ATENOLOL. [Concomitant]
     Active Substance: ATENOLOL
     Indication: PRODUCT USED FOR UNKNOWN INDICATION
     Route: 065
  6. ZOLADEX [Concomitant]
     Active Substance: GOSERELIN ACETATE
     Indication: PROSTATE CANCER METASTATIC
     Route: 065
     Dates: start: 20190117, end: 20200907

REACTIONS (9)
  - Gait disturbance [Unknown]
  - Aortic dissection [Unknown]
  - Retinal artery occlusion [Unknown]
  - Fatigue [Not Recovered/Not Resolved]
  - Fall [Unknown]
  - Optic ischaemic neuropathy [Unknown]
  - Hallucination, visual [Recovering/Resolving]
  - Psychiatric symptom [Unknown]
  - Hypertension [Unknown]
